FAERS Safety Report 7386153-4 (Version None)
Quarter: 2011Q1

REPORT INFORMATION
  Report Type: 
  Country: None (occurrence: None)
  Receive Date: 20110329
  Receipt Date: 20110329
  Transmission Date: 20110831
  Serious: No
  Sender: FDA-Public Use
  Company Number: None

PATIENT
  Sex: Male
  Weight: 123 kg

DRUGS (1)
  1. LEXISCAN [Suspect]
     Indication: ISCHAEMIA
     Dosage: 0.4MG X1 IV 040
     Route: 042
     Dates: start: 20110302

REACTIONS (1)
  - DYSPNOEA [None]
